FAERS Safety Report 5902840-6 (Version None)
Quarter: 2008Q3

REPORT INFORMATION
  Report Type: 
  Country: None (occurrence: None)
  Receive Date: 20080929
  Receipt Date: 20080929
  Transmission Date: 20090109
  Serious: No
  Sender: FDA-Public Use
  Company Number: None

PATIENT
  Age: 51 Year
  Sex: Male
  Weight: 68.0396 kg

DRUGS (3)
  1. LEVAQUIN [Suspect]
     Indication: MYCOBACTERIUM AVIUM COMPLEX INFECTION
     Dosage: IV 1X A DAY
     Dates: start: 20080401, end: 20080919
  2. LEVAQUIN [Suspect]
     Indication: PNEUMONIA
     Dosage: IV 1X A DAY
     Dates: start: 20080401, end: 20080919
  3. EFAMBUTOL [Suspect]

REACTIONS (1)
  - NEUROPATHY PERIPHERAL [None]
